FAERS Safety Report 5823383-4 (Version None)
Quarter: 2008Q3

REPORT INFORMATION
  Report Type: 
  Country: None (occurrence: None)
  Receive Date: 20080725
  Receipt Date: 20080721
  Transmission Date: 20090109
  Serious: Yes (Death)
  Sender: FDA-Public Use
  Company Number: KR-ABBOTT-08P-090-0460834-00

PATIENT
  Age: 77 Day
  Sex: Female

DRUGS (10)
  1. SEVOFLURANE [Suspect]
     Indication: ANAESTHESIA
     Dosage: OPERATION: 5 HRS 30 MIN; 1-3 VOL/%
  2. SEVOFLURANE [Suspect]
     Dosage: AFTER OPERATION ENDING:1 HR 30MIN;1-2 VOL/%
  3. DOPAMINE HCL [Concomitant]
     Indication: BLOOD PRESSURE MANAGEMENT
  4. DOBUTAMINE HCL [Concomitant]
     Indication: BLOOD PRESSURE MANAGEMENT
  5. FENTANYL [Concomitant]
     Indication: INDUCTION OF ANAESTHESIA
  6. FENTANYL [Concomitant]
     Indication: MAINTENANCE OF ANAESTHESIA
  7. VECURONIUM BROMIDE [Concomitant]
     Indication: MAINTENANCE OF ANAESTHESIA
  8. KETAMINE HCL [Concomitant]
     Indication: INDUCTION OF ANAESTHESIA
  9. KETAMINE HCL [Concomitant]
     Indication: MAINTENANCE OF ANAESTHESIA
  10. IRRADIATION BLOOD [Concomitant]
     Indication: DRUG USE FOR UNKNOWN INDICATION
     Dosage: 150 ML

REACTIONS (1)
  - ACUTE HEPATIC FAILURE [None]
